FAERS Safety Report 5692147-7 (Version None)
Quarter: 2008Q2

REPORT INFORMATION
  Report Type: 
  Country: None (occurrence: None)
  Receive Date: 20080402
  Receipt Date: 20080327
  Transmission Date: 20081010
  Serious: Yes (Life-Threatening, Hospitalization, Other)
  Sender: FDA-Public Use
  Company Number: A0717853A

PATIENT
  Age: 74 Year
  Sex: Female

DRUGS (19)
  1. ARIXTRA [Suspect]
     Indication: PULMONARY EMBOLISM
     Dosage: 7.5MG PER DAY
     Route: 058
     Dates: start: 20080318, end: 20080319
  2. NORVASC [Concomitant]
  3. CALCIUM CARBONATE [Concomitant]
  4. HYDRALAZINE HCL [Concomitant]
  5. LEVOFLOXACIN [Concomitant]
  6. COLCHICINE [Concomitant]
  7. DONEPEZIL HCL [Concomitant]
  8. ISOSORBIDE MONONITRATE [Concomitant]
  9. METOCLOPRAMIDE [Concomitant]
  10. SALINE FLUSH [Concomitant]
  11. MORPHINE [Concomitant]
  12. TYLENOL (CAPLET) [Concomitant]
  13. OMEPRAZOLE [Concomitant]
  14. PROBENECID [Concomitant]
  15. TRAMADOL HCL [Concomitant]
  16. BLOOD TRANSFUSION [Concomitant]
  17. DOXEPIN HCL [Concomitant]
  18. ENOXAPARIN SODIUM [Concomitant]
  19. WARFARIN SODIUM [Concomitant]

REACTIONS (6)
  - ACTIVATED PARTIAL THROMBOPLASTIN TIME PROLONGED [None]
  - BLOOD CREATININE INCREASED [None]
  - HAEMATOMA [None]
  - HAEMORRHAGE [None]
  - INTERNATIONAL NORMALISED RATIO INCREASED [None]
  - MUSCLE INJURY [None]
